FAERS Safety Report 17672068 (Version 1)
Quarter: 2020Q2

REPORT INFORMATION
  Report Type: Report from Study
  Country: IT (occurrence: IT)
  Receive Date: 20200415
  Receipt Date: 20200415
  Transmission Date: 20200713
  Serious: Yes (Hospitalization)
  Sender: FDA-Public Use
  Company Number: IT-BAXTER-2020BAX007523

PATIENT
  Age: 88 Year
  Sex: Female

DRUGS (6)
  1. BISOPROLOL FUMARATE. [Concomitant]
     Active Substance: BISOPROLOL FUMARATE
     Indication: PRODUCT USED FOR UNKNOWN INDICATION
     Route: 065
  2. RAMIPRIL. [Concomitant]
     Active Substance: RAMIPRIL
     Indication: PRODUCT USED FOR UNKNOWN INDICATION
     Route: 065
  3. KANRENOL [Suspect]
     Active Substance: CANRENOATE POTASSIUM
     Indication: PRODUCT USED FOR UNKNOWN INDICATION
     Dosage: KANRENOL 25 TABLETS
     Route: 065
     Dates: start: 20200101, end: 20200126
  4. COUMADIN [Concomitant]
     Active Substance: WARFARIN SODIUM
     Indication: PRODUCT USED FOR UNKNOWN INDICATION
     Dosage: TABLETS
     Route: 065
  5. DIRETIF 10 MG/ML SOLUZIONE INIETTABILE [Suspect]
     Active Substance: FUROSEMIDE
     Indication: HYPERTENSION
     Route: 065
     Dates: start: 20200101, end: 20200126
  6. PANTOPRAZOLE SODIUM SESQUIHYDRATE [Concomitant]
     Active Substance: PANTOPRAZOLE SODIUM
     Indication: PRODUCT USED FOR UNKNOWN INDICATION
     Route: 065

REACTIONS (3)
  - Pleural effusion [Recovering/Resolving]
  - Hypervolaemia [Recovering/Resolving]
  - Hyponatraemia [Recovering/Resolving]

NARRATIVE: CASE EVENT DATE: 20200126
